FAERS Safety Report 7589294-1 (Version None)
Quarter: 2011Q3

REPORT INFORMATION
  Report Type: 
  Country: None (occurrence: None)
  Receive Date: 20110705
  Receipt Date: 20110623
  Transmission Date: 20111222
  Serious: Yes (Other)
  Sender: FDA-Public Use
  Company Number: GB-JNJFOC-20110611388

PATIENT
  Age: 37 Year
  Sex: Female

DRUGS (5)
  1. ACETAMINOPHEN AND CODEINE PHOSPHATE [Suspect]
     Indication: SYMPHYSIOLYSIS
     Route: 065
  2. ACETAMINOPHEN [Suspect]
     Route: 065
  3. MORPHINE SULFATE [Suspect]
     Indication: SYMPHYSIOLYSIS
     Route: 065
     Dates: start: 20100922
  4. ACETAMINOPHEN [Suspect]
     Indication: SYMPHYSIOLYSIS
     Route: 065
  5. BUTRANS [Suspect]
     Indication: SYMPHYSIOLYSIS
     Route: 062
     Dates: start: 20101215, end: 20101229

REACTIONS (2)
  - INTRA-UTERINE DEATH [None]
  - MATERNAL EXPOSURE DURING PREGNANCY [None]
